FAERS Safety Report 17485432 (Version 2)
Quarter: 2020Q2

REPORT INFORMATION
  Report Type: Other
  Country: IT (occurrence: IT)
  Receive Date: 20200302
  Receipt Date: 20200408
  Transmission Date: 20200713
  Serious: Yes (Hospitalization, Other)
  Sender: FDA-Public Use
  Company Number: IT-CELLTRION INC.-2020IT019718

PATIENT

DRUGS (3)
  1. PACLITAXEL ACCORD HEALTHCARE ITALIA [Suspect]
     Active Substance: PACLITAXEL
     Indication: INVASIVE DUCTAL BREAST CARCINOMA
     Dosage: 150 MG, CYCLIC
     Route: 042
     Dates: start: 20191029, end: 20200114
  2. OMEPRAZOLE. [Concomitant]
     Active Substance: OMEPRAZOLE
  3. HERZUMA [Suspect]
     Active Substance: TRASTUZUMAB-PKRB
     Indication: INVASIVE DUCTAL BREAST CARCINOMA
     Dosage: 510 MG, CYCLIC
     Route: 042
     Dates: start: 20191029, end: 20200114

REACTIONS (10)
  - Axillary vein thrombosis [Recovering/Resolving]
  - Influenza [Recovering/Resolving]
  - Flushing [Recovering/Resolving]
  - Asthenia [Recovering/Resolving]
  - Abdominal pain [Recovering/Resolving]
  - Underdose [Unknown]
  - Cough [Recovering/Resolving]
  - Diarrhoea [Recovering/Resolving]
  - Subclavian vein thrombosis [Recovering/Resolving]
  - Musculoskeletal pain [Recovering/Resolving]

NARRATIVE: CASE EVENT DATE: 20191102
